FAERS Safety Report 10226714 (Version 1)
Quarter: 2014Q2

REPORT INFORMATION
  Report Type: Report from Study
  Country: US (occurrence: US)
  Receive Date: 20140610
  Receipt Date: 20140610
  Transmission Date: 20141212
  Serious: Yes (Other)
  Sender: FDA-Public Use
  Company Number: US-ROCHE-1415230

PATIENT
  Sex: Female

DRUGS (3)
  1. NUTROPIN AQ [Suspect]
     Indication: TURNER^S SYNDROME
     Route: 058
     Dates: start: 201308
  2. LIDOCAINE/PRILOCAINE [Concomitant]
     Route: 061
  3. SODIUM FLUORIDE [Concomitant]
     Route: 048

REACTIONS (7)
  - Ear infection [Unknown]
  - Deafness [Unknown]
  - Attention deficit/hyperactivity disorder [Unknown]
  - Increased appetite [Unknown]
  - Pain [Unknown]
  - Anticipatory anxiety [Unknown]
  - Initial insomnia [Unknown]
